FAERS Safety Report 17216093 (Version 1)
Quarter: 2019Q4

REPORT INFORMATION
  Report Type: Spontaneous
  Country: US (occurrence: US)
  Receive Date: 20191230
  Receipt Date: 20191230
  Transmission Date: 20200122
  Serious: Yes (Hospitalization)
  Sender: FDA-Public Use
  Company Number: US-CELGENEUS-USA-20191210296

PATIENT
  Age: 66 Year
  Sex: Male

DRUGS (44)
  1. LORAZEPAM. [Concomitant]
     Active Substance: LORAZEPAM
     Indication: ADVERSE EVENT
     Route: 065
     Dates: start: 20190203, end: 20190203
  2. PROCHLORPERAZINE MALEATE. [Concomitant]
     Active Substance: PROCHLORPERAZINE MALEATE
     Indication: ADVERSE EVENT
     Route: 065
     Dates: start: 20190201, end: 20190206
  3. RIVAROXABAN [Concomitant]
     Active Substance: RIVAROXABAN
     Indication: ADVERSE EVENT
     Route: 065
     Dates: start: 20190924
  4. DILTIAZEM. [Concomitant]
     Active Substance: DILTIAZEM
     Indication: ADVERSE EVENT
     Route: 065
     Dates: start: 20190923, end: 20191202
  5. SODIUM CHLORIDE. [Concomitant]
     Active Substance: SODIUM CHLORIDE
     Indication: ADVERSE EVENT
     Route: 065
     Dates: start: 20191217, end: 20191218
  6. LEVOFLOXACIN. [Concomitant]
     Active Substance: LEVOFLOXACIN
     Route: 065
     Dates: start: 20181204, end: 20181213
  7. LEVOFLOXACIN. [Concomitant]
     Active Substance: LEVOFLOXACIN
     Route: 065
     Dates: start: 20191105, end: 20191115
  8. ENOXAPARIN [Concomitant]
     Active Substance: ENOXAPARIN
     Indication: ADVERSE EVENT
     Route: 065
     Dates: start: 20190201, end: 20190205
  9. THIAMINE. [Concomitant]
     Active Substance: THIAMINE
     Indication: ADVERSE EVENT
     Route: 065
     Dates: start: 20190203, end: 20190205
  10. METOPROLOL. [Concomitant]
     Active Substance: METOPROLOL
     Indication: ADVERSE EVENT
     Route: 065
     Dates: start: 201806, end: 20180717
  11. CLOPIDOGREL [Concomitant]
     Active Substance: CLOPIDOGREL BISULFATE
     Indication: ADVERSE EVENT
     Route: 065
     Dates: start: 20190204
  12. LISINOPRIL. [Concomitant]
     Active Substance: LISINOPRIL
     Indication: ADVERSE EVENT
     Route: 065
     Dates: start: 20190203
  13. CHLORDIAZEPOXIDE. [Concomitant]
     Active Substance: CHLORDIAZEPOXIDE
     Indication: ADVERSE EVENT
     Route: 065
     Dates: start: 20190203, end: 20190206
  14. HYDROMORPHONE [Concomitant]
     Active Substance: HYDROMORPHONE
     Indication: ADVERSE EVENT
     Route: 065
     Dates: start: 20190201, end: 20190206
  15. LACTATED RINGERS SOLUTION [Concomitant]
     Active Substance: CALCIUM CHLORIDE\POTASSIUM CHLORIDE\SODIUM CHLORIDE\SODIUM LACTATE
     Indication: ADVERSE EVENT
     Route: 065
     Dates: start: 20190201, end: 20190201
  16. MAGNESIUM SULFATE. [Concomitant]
     Active Substance: MAGNESIUM SULFATE
     Indication: ADVERSE EVENT
     Route: 065
     Dates: start: 20190201, end: 20190206
  17. DEXAMETHASONE IV [Suspect]
     Active Substance: DEXAMETHASONE
     Indication: PRODUCT USED FOR UNKNOWN INDICATION
     Dosage: 8 MILLIGRAM
     Route: 041
     Dates: start: 20160906
  18. AMLODIPINE [Concomitant]
     Active Substance: AMLODIPINE BESYLATE
     Indication: PRODUCT USED FOR UNKNOWN INDICATION
     Route: 065
     Dates: start: 20100629
  19. MORPHINE SULFATE ER [Concomitant]
     Active Substance: MORPHINE SULFATE
     Indication: PRODUCT USED FOR UNKNOWN INDICATION
     Route: 065
     Dates: start: 20151215
  20. MIRTAZAPINE. [Concomitant]
     Active Substance: MIRTAZAPINE
     Indication: ADVERSE EVENT
     Route: 065
     Dates: start: 20180531
  21. FUROSEMIDE. [Concomitant]
     Active Substance: FUROSEMIDE
     Indication: ADVERSE EVENT
     Route: 065
     Dates: start: 20190202, end: 20190206
  22. NORCO [Concomitant]
     Active Substance: ACETAMINOPHEN\HYDROCODONE BITARTRATE
     Indication: ADVERSE EVENT
     Route: 065
     Dates: start: 20190201, end: 20190201
  23. INSULIN [Concomitant]
     Active Substance: INSULIN NOS
     Indication: ADVERSE EVENT
     Route: 065
     Dates: start: 20190201, end: 20190201
  24. BACLOFEN. [Concomitant]
     Active Substance: BACLOFEN
     Indication: PRODUCT USED FOR UNKNOWN INDICATION
     Route: 065
     Dates: start: 20140703, end: 20190206
  25. LEVOFLOXACIN. [Concomitant]
     Active Substance: LEVOFLOXACIN
     Indication: ADVERSE EVENT
     Route: 065
     Dates: start: 20170613, end: 20170622
  26. ATORVASTATIN [Concomitant]
     Active Substance: ATORVASTATIN
     Indication: ADVERSE EVENT
     Route: 065
     Dates: start: 201806
  27. AZTREONAM. [Concomitant]
     Active Substance: AZTREONAM
     Indication: ADVERSE EVENT
     Route: 065
     Dates: start: 20190201, end: 20190201
  28. FAMOTIDINE. [Concomitant]
     Active Substance: FAMOTIDINE
     Indication: ADVERSE EVENT
     Route: 065
     Dates: start: 20190201, end: 20190204
  29. FOLIC ACID. [Concomitant]
     Active Substance: FOLIC ACID
     Indication: ADVERSE EVENT
     Route: 065
     Dates: start: 20190203, end: 20190205
  30. PHENYLEPHRINE [Concomitant]
     Active Substance: PHENYLEPHRINE HYDROCHLORIDE
     Indication: ADVERSE EVENT
     Route: 065
     Dates: start: 20190201, end: 20190201
  31. REVLIMID [Suspect]
     Active Substance: LENALIDOMIDE
     Indication: PRODUCT USED FOR UNKNOWN INDICATION
     Dosage: 5 MILLIGRAM
     Route: 048
     Dates: start: 20160906
  32. DEXAMETHASONE ORAL [Suspect]
     Active Substance: DEXAMETHASONE
     Indication: PRODUCT USED FOR UNKNOWN INDICATION
     Dosage: 8 MILLIGRAM
     Route: 048
     Dates: start: 20160906
  33. METOPROLOL. [Concomitant]
     Active Substance: METOPROLOL
     Route: 065
     Dates: start: 20190128, end: 20190507
  34. PROAIR HFA [Concomitant]
     Active Substance: ALBUTEROL SULFATE
     Indication: ADVERSE EVENT
     Route: 065
     Dates: start: 201812
  35. TAMSULOSIN [Concomitant]
     Active Substance: TAMSULOSIN
     Indication: PRODUCT USED FOR UNKNOWN INDICATION
     Route: 065
     Dates: start: 20180524
  36. CHLORTHALIDONE. [Concomitant]
     Active Substance: CHLORTHALIDONE
     Indication: ADVERSE EVENT
     Route: 065
     Dates: start: 20191209
  37. ELOTUZUMAB. [Suspect]
     Active Substance: ELOTUZUMAB
     Indication: PRODUCT USED FOR UNKNOWN INDICATION
     Dosage: 1668 MILLIGRAM
     Route: 041
     Dates: start: 20160906
  38. DTAP [Concomitant]
     Active Substance: DIPHTHERIA AND TETANUS TOXOIDS AND ACELLULAR PERTUSSIS VACCINE ADSORBED
     Indication: ADVERSE EVENT
     Route: 065
     Dates: start: 20170711, end: 20170711
  39. AMIODARONE [Concomitant]
     Active Substance: AMIODARONE
     Indication: ADVERSE EVENT
     Route: 065
     Dates: start: 20190202, end: 20190206
  40. AMIODARONE [Concomitant]
     Active Substance: AMIODARONE
     Route: 065
     Dates: start: 20191209
  41. POTASSIUM CHLORIDE. [Concomitant]
     Active Substance: POTASSIUM CHLORIDE
     Indication: ADVERSE EVENT
     Route: 065
     Dates: start: 20190202, end: 20190206
  42. ASPIRIN. [Concomitant]
     Active Substance: ASPIRIN
     Indication: PRODUCT USED FOR UNKNOWN INDICATION
     Route: 065
     Dates: start: 20101102
  43. PERCOCET [Concomitant]
     Active Substance: ACETAMINOPHEN\OXYCODONE HYDROCHLORIDE
     Indication: PRODUCT USED FOR UNKNOWN INDICATION
     Route: 065
     Dates: start: 20130206
  44. IOPAMIDOL [Concomitant]
     Active Substance: IOPAMIDOL
     Indication: ADVERSE EVENT
     Route: 065
     Dates: start: 20190131, end: 20190131

REACTIONS (1)
  - Cardiac failure acute [Recovered/Resolved]

NARRATIVE: CASE EVENT DATE: 20190131
